FAERS Safety Report 14191811 (Version 8)
Quarter: 2019Q2

REPORT INFORMATION
  Report Type: Spontaneous
  Country: US (occurrence: US)
  Receive Date: 20171115
  Receipt Date: 20190529
  Transmission Date: 20190711
  Serious: Yes (Hospitalization)
  Sender: FDA-Public Use
  Company Number: US-BIOGEN-2017BI00483745

PATIENT
  Age: 20 Year
  Sex: Male

DRUGS (2)
  1. SPINRAZA [Suspect]
     Active Substance: NUSINERSEN
     Indication: SPINAL MUSCULAR ATROPHY
     Route: 050
     Dates: start: 20171101
  2. LIDOCAINE. [Concomitant]
     Active Substance: LIDOCAINE
     Indication: PRODUCT USED FOR UNKNOWN INDICATION
     Route: 065

REACTIONS (5)
  - Dermal cyst [Unknown]
  - Musculoskeletal pain [Unknown]
  - Procedural pain [Unknown]
  - Hunger [Unknown]
  - Meningitis bacterial [Recovered/Resolved]

NARRATIVE: CASE EVENT DATE: 20171101
